FAERS Safety Report 13348732 (Version 2)
Quarter: 2017Q3

REPORT INFORMATION
  Report Type: Report from Study
  Country: None (occurrence: US)
  Receive Date: 20170320
  Receipt Date: 20170811
  Transmission Date: 20171127
  Serious: Yes (Hospitalization, Other)
  Sender: FDA-Public Use
  Company Number: US-ABBVIE-17K-163-1863424-00

PATIENT
  Age: 55 Year
  Sex: Female
  Weight: 54.93 kg

DRUGS (5)
  1. HUMIRA [Suspect]
     Active Substance: ADALIMUMAB
     Route: 058
     Dates: start: 20170105
  2. HUMIRA [Suspect]
     Active Substance: ADALIMUMAB
     Indication: CROHN^S DISEASE
     Dosage: 4 PENS
     Route: 058
     Dates: start: 20170105, end: 20170105
  3. HUMIRA [Suspect]
     Active Substance: ADALIMUMAB
     Route: 058
     Dates: start: 20170120, end: 20170120
  4. BACTRIM [Suspect]
     Active Substance: SULFAMETHOXAZOLE\TRIMETHOPRIM
     Indication: EAR INFECTION
     Route: 065
  5. CIPROFLOXACIN. [Suspect]
     Active Substance: CIPROFLOXACIN
     Indication: EAR INFECTION
     Route: 065

REACTIONS (13)
  - Migraine [Not Recovered/Not Resolved]
  - Pain in extremity [Recovering/Resolving]
  - Abdominal pain [Recovered/Resolved]
  - Dizziness [Unknown]
  - Abdominal discomfort [Recovered/Resolved]
  - Gastrointestinal disorder [Not Recovered/Not Resolved]
  - Fungal infection [Recovered/Resolved]
  - Nausea [Not Recovered/Not Resolved]
  - White blood cell count increased [Recovered/Resolved]
  - Ear infection [Recovering/Resolving]
  - Gastrointestinal inflammation [Recovered/Resolved]
  - Hiatus hernia [Recovered/Resolved]
  - Fatigue [Not Recovered/Not Resolved]

NARRATIVE: CASE EVENT DATE: 2017
